FAERS Safety Report 9960260 (Version 1)
Quarter: 2014Q1

REPORT INFORMATION
  Report Type: Spontaneous
  Country: US (occurrence: None)
  Receive Date: 20140228
  Receipt Date: 20140228
  Transmission Date: 20141002
  Serious: Yes (Other)
  Sender: FDA-Public Use
  Company Number: None

PATIENT
  Sex: Female
  Weight: 44 kg

DRUGS (2)
  1. PRAVASTATIN 80MG [Suspect]
  2. NORGESTIMATE AND ETHINYL ESTRADIOL [Suspect]

REACTIONS (3)
  - Nausea [None]
  - Product substitution issue [None]
  - Therapeutic response unexpected with drug substitution [None]
